FAERS Safety Report 4310204-4 (Version None)
Quarter: 2004Q1

REPORT INFORMATION
  Report Type: 
  Country: None (occurrence: None)
  Receive Date: 20040302
  Receipt Date: 20040302
  Transmission Date: 20041129
  Serious: No
  Sender: FDA-Public Use
  Company Number: None

PATIENT
  Age: 32 Year
  Sex: Male
  Weight: 89.3586 kg

DRUGS (1)
  1. ZICAM [Suspect]
     Indication: NASOPHARYNGITIS
     Dates: start: 20031201, end: 20031220

REACTIONS (1)
  - ANOSMIA [None]
